FAERS Safety Report 8394915-X (Version None)
Quarter: 2012Q2

REPORT INFORMATION
  Report Type: 
  Country: None (occurrence: None)
  Receive Date: 20120530
  Receipt Date: 20110610
  Transmission Date: 20120825
  Serious: No
  Sender: FDA-Public Use
  Company Number: US-GLAXOSMITHKLINE-A0931643A

PATIENT
  Age: 60 Year
  Sex: Female
  Weight: 50.8 kg

DRUGS (4)
  1. ADCIRCA [Concomitant]
  2. FLOLAN [Suspect]
     Indication: HYPERTENSION
     Dates: start: 20040206
  3. COUMADIN [Concomitant]
  4. LETAIRIS [Concomitant]

REACTIONS (1)
  - ABSCESS [None]
